FAERS Safety Report 9513299 (Version 1)
Quarter: 2013Q1

REPORT INFORMATION
  Report Type: Spontaneous
  Country: US (occurrence: None)
  Receive Date: 20130305
  Receipt Date: 20130305
  Transmission Date: 20140127
  Serious: Yes (Hospitalization, Other)
  Sender: FDA-Public Use
  Company Number: 163-21880-12021733

PATIENT
  Age: 72 Year
  Sex: Female

DRUGS (4)
  1. REVLIMID (LENALIDOMIDE) (CAPSULES) [Suspect]
     Indication: PLASMA CELL MYELOMA
     Dosage: 15MG, AT BEDTIME, PO
     Route: 048
     Dates: start: 20120210
  2. TARCEVA (ERLOTINIB) (150 MILLIGRAM) [Concomitant]
  3. ARAMESP (DARBEPOETIN ALFA) [Concomitant]
  4. FAMVIR (FACICLOVIR) [Concomitant]

REACTIONS (8)
  - Full blood count decreased [None]
  - White blood cell count decreased [None]
  - Red blood cell count decreased [None]
  - Meningitis viral [None]
  - Herpes zoster [None]
  - Encephalitis [None]
  - Fatigue [None]
  - Diarrhoea [None]
